FAERS Safety Report 18509175 (Version 1)
Quarter: 2020Q4

REPORT INFORMATION
  Report Type: Spontaneous
  Country: DE (occurrence: DE)
  Receive Date: 20201117
  Receipt Date: 20201117
  Transmission Date: 20210114
  Serious: Yes (Hospitalization, Other)
  Sender: FDA-Public Use
  Company Number: DE-AUROBINDO-AUR-APL-2020-055805

PATIENT
  Age: 40 Year
  Sex: Female

DRUGS (2)
  1. SERTRALINE [Suspect]
     Active Substance: SERTRALINE HYDROCHLORIDE
     Indication: MAJOR DEPRESSION
     Dosage: 100 MILLIGRAM, ONCE A DAY (REDUCED)
     Route: 065
     Dates: start: 2019, end: 2019
  2. MILNACIPRAN [Concomitant]
     Active Substance: MILNACIPRAN
     Indication: MAJOR DEPRESSION
     Dosage: 50 MILLIGRAM, ONCE A DAY
     Route: 065
     Dates: start: 2019

REACTIONS (3)
  - Withdrawal syndrome [Recovered/Resolved]
  - Persistent genital arousal disorder [Recovered/Resolved]
  - Stress [Recovered/Resolved]

NARRATIVE: CASE EVENT DATE: 2019
